FAERS Safety Report 11244541 (Version 1)
Quarter: 2015Q3

REPORT INFORMATION
  Report Type: Report from Study
  Country: NO (occurrence: NO)
  Receive Date: 20150707
  Receipt Date: 20150707
  Transmission Date: 20151125
  Serious: Yes (Other)
  Sender: FDA-Public Use
  Company Number: NO-BAYER-2015-117532

PATIENT
  Age: 35 Year
  Sex: Female

DRUGS (1)
  1. MIRENA [Suspect]
     Active Substance: LEVONORGESTREL
     Dosage: 20 MCG/24HR, CONT
     Route: 015
     Dates: start: 2013, end: 20140919

REACTIONS (8)
  - Ovarian germ cell teratoma benign [None]
  - Amenorrhoea [None]
  - Uterine perforation [Recovered/Resolved]
  - Adnexa uteri pain [None]
  - Menstruation irregular [None]
  - Ovarian cyst [None]
  - Therapeutic response unexpected [None]
  - Abdominal pain [Recovered/Resolved]

NARRATIVE: CASE EVENT DATE: 2014
